FAERS Safety Report 18538482 (Version 2)
Quarter: 2021Q1

REPORT INFORMATION
  Report Type: Report from Study
  Country: GB (occurrence: GB)
  Receive Date: 20201124
  Receipt Date: 20210129
  Transmission Date: 20210419
  Serious: Yes (Hospitalization, Other)
  Sender: FDA-Public Use
  Company Number: NVSC2020GB158609

PATIENT
  Sex: Male

DRUGS (1)
  1. ERELZI [Suspect]
     Active Substance: ETANERCEPT-SZZS
     Indication: RHEUMATOID ARTHRITIS
     Dosage: 50 MG, QW
     Route: 065

REACTIONS (4)
  - Nephrolithiasis [Unknown]
  - Poor quality sleep [Unknown]
  - Cholecystitis [Unknown]
  - Rheumatoid arthritis [Recovering/Resolving]
